FAERS Safety Report 7599789 (Version 5)
Quarter: 2013Q2

REPORT INFORMATION
  Report Type: Spontaneous
  Country: JP (occurrence: JP)
  Receive Date: 20100921
  Receipt Date: 20130401
  Transmission Date: 20140414
  Serious: Yes (Hospitalization, Other)
  Sender: FDA-Public Use
  Company Number: PHHY2010JP60520

PATIENT
  Sex: 0

DRUGS (7)
  1. CICLOSPORIN [Suspect]
     Indication: PUSTULAR PSORIASIS
     Dosage: UNK UKN, UNK
     Dates: end: 200809
  2. PREDNISOLONE [Concomitant]
     Dosage: UNK UKN, UNK
     Route: 048
  3. PREDNISOLONE [Concomitant]
     Dosage: 1 MG/KG/DAY
  4. PREDNISOLONE [Concomitant]
     Dosage: 7.5 MG, QD
  5. METHYLPREDNISOLONE [Concomitant]
     Dosage: UNK UKN, UNK
     Route: 048
  6. PUVA [Concomitant]
     Dosage: UNK UKN, UNK
  7. ETRETINATE [Concomitant]
     Dosage: UNK UKN, UNK

REACTIONS (12)
  - Tonsillar disorder [Unknown]
  - Renal disorder [Unknown]
  - Psoriasis [Unknown]
  - Rash pustular [Unknown]
  - Ulcer [Unknown]
  - Rash [Recovered/Resolved]
  - Pyrexia [Unknown]
  - Erythema [Not Recovered/Not Resolved]
  - Blister [Unknown]
  - Skin exfoliation [Unknown]
  - Concomitant disease progression [Unknown]
  - Pulmonary mass [Unknown]
